FAERS Safety Report 5556427-8 (Version None)
Quarter: 2007Q4

REPORT INFORMATION
  Report Type: 
  Country: None (occurrence: None)
  Receive Date: 20071130
  Receipt Date: 20070821
  Transmission Date: 20080405
  Serious: No
  Sender: FDA-Public Use
  Company Number: US200708004786

PATIENT
  Sex: Female

DRUGS (2)
  1. BYETTA [Suspect]
     Dosage: 10 UG, 2/D, SUBCUTANEOUS
     Route: 058
  2. EXENATIDE 10MCG PEN, DISPOSABLE DEVICE (EXENATIDE PEN (10MCG)) PEN,DIS [Concomitant]

REACTIONS (1)
  - MALAISE [None]
